FAERS Safety Report 9610378 (Version 2)
Quarter: 2013Q4

REPORT INFORMATION
  Report Type: Spontaneous
  Country: US (occurrence: US)
  Receive Date: 20131009
  Receipt Date: 20131009
  Transmission Date: 20140711
  Serious: No
  Sender: FDA-Public Use
  Company Number: US-PURDUE-USA-2012-0096710

PATIENT
  Age: 56 Year
  Sex: Female

DRUGS (5)
  1. BUTRANS [Suspect]
     Indication: BACK PAIN
     Dosage: 20 MCG, 1/WEEK
     Route: 062
     Dates: start: 201211
  2. BUTRANS [Suspect]
     Indication: PAIN IN EXTREMITY
     Dosage: 10 MCG, WEEKLY
     Route: 062
     Dates: start: 201206
  3. VICODIN [Concomitant]
     Indication: BREAKTHROUGH PAIN
     Dosage: 1 TABLET, PRN
     Route: 048
  4. CYMBALTA [Concomitant]
     Indication: PRODUCT USED FOR UNKNOWN INDICATION
     Dosage: 90 MG, DAILY
     Route: 048
  5. NEURONTIN [Concomitant]
     Indication: NEURALGIA
     Dosage: 1200 MG, DAILY
     Route: 048

REACTIONS (5)
  - Application site burn [Unknown]
  - Application site discharge [Unknown]
  - Application site rash [Unknown]
  - Product adhesion issue [Unknown]
  - Application site pruritus [Unknown]
